FAERS Safety Report 12584923 (Version 3)
Quarter: 2017Q1

REPORT INFORMATION
  Report Type: Report from Study
  Country: US (occurrence: US)
  Receive Date: 20160722
  Receipt Date: 20170124
  Transmission Date: 20170428
  Serious: No
  Sender: FDA-Public Use
  Company Number: US-AMGEN-USASL2016072722

PATIENT
  Age: 62 Year
  Sex: Female
  Weight: 74.38 kg

DRUGS (11)
  1. METROLOTION [Concomitant]
     Active Substance: METRONIDAZOLE
  2. ACIPHEX [Concomitant]
     Active Substance: RABEPRAZOLE SODIUM
     Dosage: 20 MG, QD
     Route: 048
  3. VALTREX [Concomitant]
     Active Substance: VALACYCLOVIR HYDROCHLORIDE
     Dosage: 500 MG, UNK
  4. ADVAIR HFA [Concomitant]
     Active Substance: FLUTICASONE PROPIONATE\SALMETEROL XINAFOATE
     Dosage: 250 MCG/50 MCG
  5. SINGULAIR [Concomitant]
     Active Substance: MONTELUKAST SODIUM
     Dosage: 10 MG, QD
     Route: 048
  6. LOPRESSOR [Concomitant]
     Active Substance: METOPROLOL TARTRATE
  7. ASTELIN                            /00085801/ [Concomitant]
     Active Substance: AZELASTINE HYDROCHLORIDE
     Dosage: 137 MUG, BID
     Route: 045
  8. MUCINEX [Concomitant]
     Active Substance: GUAIFENESIN
     Dosage: 1200 MG, AS NECESSARY
     Route: 048
  9. VIVELLE [Concomitant]
     Active Substance: ESTRADIOL
     Dosage: 0.05 MG, 2 TIMES/WK
     Route: 061
  10. MINIVELLE [Concomitant]
     Active Substance: ESTRADIOL
  11. REPATHA [Suspect]
     Active Substance: EVOLOCUMAB
     Indication: BLOOD CHOLESTEROL INCREASED
     Dosage: 140 MG, Q2WK
     Route: 058
     Dates: start: 20160606

REACTIONS (3)
  - Drug hypersensitivity [Recovered/Resolved]
  - Blood pressure abnormal [Recovered/Resolved]
  - Anxiety [Recovered/Resolved]

NARRATIVE: CASE EVENT DATE: 20160606
